FAERS Safety Report 6472106-7 (Version None)
Quarter: 2009Q4

REPORT INFORMATION
  Report Type: 
  Country: None (occurrence: None)
  Receive Date: 20091203
  Receipt Date: 20080527
  Transmission Date: 20100525
  Serious: Yes (Hospitalization)
  Sender: FDA-Public Use
  Company Number: US-ELI_LILLY_AND_COMPANY-US200804001748

PATIENT
  Sex: Male
  Weight: 106.58 kg

DRUGS (12)
  1. CYMBALTA [Suspect]
     Indication: POST-TRAUMATIC STRESS DISORDER
     Dosage: 60 MG, UNK
  2. CYMBALTA [Suspect]
     Dosage: 120 MG, DAILY (1/D)
  3. ASPIRIN [Concomitant]
     Dosage: 81 MG, DAILY (1/D)
  4. TRICOR [Concomitant]
     Dosage: 48 MG, 3/D
  5. ZETIA [Concomitant]
     Dosage: 10 MG, DAILY (1/D)
  6. HYZAAR [Concomitant]
     Dosage: 50/12.5 MG, 2/D
  7. HYZAAR [Concomitant]
     Dosage: 20/12.5, 2 TABS QHS
  8. CLONAZEPAM [Concomitant]
     Dosage: 2 MG, 2/D
  9. CLONAZEPAM [Concomitant]
     Dosage: 4 MG, EACH EVENING
  10. ADVAIR DISKUS 100/50 [Concomitant]
     Dosage: 1 PUFF=50/500 MG , 2/D
  11. PRO-AIR [Concomitant]
     Dosage: 2 PUFFS Q4H PRN
  12. CLOBETASOL PROPIONATE [Concomitant]
     Indication: ECZEMA
     Dosage: 0.05 %, UNK
     Route: 061

REACTIONS (3)
  - BRONCHITIS [None]
  - DEEP VEIN THROMBOSIS [None]
  - PULMONARY EMBOLISM [None]
